FAERS Safety Report 11660972 (Version 3)
Quarter: 2016Q1

REPORT INFORMATION
  Report Type: Report from Study
  Country: JP (occurrence: JP)
  Receive Date: 20151026
  Receipt Date: 20160303
  Transmission Date: 20160525
  Serious: Yes (Death, Hospitalization)
  Sender: FDA-Public Use
  Company Number: JP-EISAI MEDICAL RESEARCH-EC-2015-011496

PATIENT
  Age: 78 Year
  Sex: Male
  Weight: 53 kg

DRUGS (9)
  1. MICARDIS [Concomitant]
     Active Substance: TELMISARTAN
  2. LEVOTHYROXINE. [Concomitant]
     Active Substance: LEVOTHYROXINE
  3. LENVIMA [Suspect]
     Active Substance: LENVATINIB
     Indication: ANAPLASTIC THYROID CANCER
     Route: 048
     Dates: start: 20150729, end: 20150826
  4. CALCIUM LACTATE [Concomitant]
     Active Substance: CALCIUM LACTATE
  5. THYRADIN S [Concomitant]
     Active Substance: LEVOTHYROXINE SODIUM
  6. CONIEL [Concomitant]
     Active Substance: BENIDIPINE HYDROCHLORIDE
  7. FLUITRAN [Concomitant]
     Active Substance: TRICHLORMETHIAZIDE
  8. LENVIMA [Suspect]
     Active Substance: LENVATINIB
     Route: 048
     Dates: start: 20150914, end: 20151008
  9. ALFAROL [Concomitant]
     Active Substance: ALFACALCIDOL

REACTIONS (1)
  - Gastrointestinal haemorrhage [Recovered/Resolved]

NARRATIVE: CASE EVENT DATE: 20151005
